FAERS Safety Report 9377419 (Version 1)
Quarter: 2013Q3

REPORT INFORMATION
  Report Type: Spontaneous
  Country: US (occurrence: US)
  Receive Date: 20130701
  Receipt Date: 20130701
  Transmission Date: 20140515
  Serious: Yes (Hospitalization, Disabling, Other)
  Sender: FDA-Public Use
  Company Number: US-PFIZER INC-2005160705

PATIENT
  Age: 60 Year
  Sex: Male
  Weight: 102.4 kg

DRUGS (13)
  1. LYRICA [Suspect]
     Indication: MYELITIS
     Dosage: 300 MG, 2X/DAY
     Dates: start: 2001
  2. LYRICA [Suspect]
     Indication: NEUROPATHY PERIPHERAL
     Dosage: 150 MG, 2X/DAY
     Dates: start: 2005
  3. LYRICA [Suspect]
     Indication: MUSCLE SPASMS
     Dosage: 300 MG, 2X/DAY
     Dates: start: 2005
  4. LYRICA [Suspect]
     Indication: SPINAL DISORDER
     Dosage: 75 MG, 4X/DAY
     Dates: start: 200601
  5. LYRICA [Suspect]
     Indication: PAIN
  6. VALIUM [Concomitant]
  7. BACLOFEN [Concomitant]
     Dosage: 20 MG, 4X/DAY
  8. METHADONE [Concomitant]
  9. MORPHINE [Concomitant]
  10. DILAUDID [Concomitant]
  11. LIPITOR [Concomitant]
     Indication: BLOOD CHOLESTEROL INCREASED
     Dosage: 10 MG DAILY
     Route: 048
  12. ZESTRIL [Concomitant]
     Route: 048
  13. COZAAR [Concomitant]
     Dosage: UNK

REACTIONS (9)
  - Diplegia [Recovering/Resolving]
  - Nerve injury [Unknown]
  - Paraplegia [Unknown]
  - Hearing impaired [Unknown]
  - Tinnitus [Unknown]
  - Joint swelling [Unknown]
  - Drug ineffective [Not Recovered/Not Resolved]
  - Constipation [Unknown]
  - Pain [Unknown]
